FAERS Safety Report 5890892-1 (Version None)
Quarter: 2008Q3

REPORT INFORMATION
  Report Type: 
  Country: None (occurrence: None)
  Receive Date: 20080918
  Receipt Date: 20080918
  Transmission Date: 20090109
  Serious: Yes (Hospitalization)
  Sender: FDA-Public Use
  Company Number: None

PATIENT
  Age: 46 Year
  Sex: Male
  Weight: 79.3795 kg

DRUGS (1)
  1. AUGMENTIN '125' [Suspect]
     Indication: UPPER RESPIRATORY TRACT INFECTION
     Dosage: 500 MG Q12H PO, 3-4 DAYS
     Route: 048

REACTIONS (5)
  - CHEILITIS [None]
  - DYSPHAGIA [None]
  - LIP SWELLING [None]
  - RASH PRURITIC [None]
  - STEVENS-JOHNSON SYNDROME [None]
